FAERS Safety Report 6979563-8 (Version None)
Quarter: 2010Q3

REPORT INFORMATION
  Report Type: 
  Country: None (occurrence: None)
  Receive Date: 20100910
  Receipt Date: 20100910
  Transmission Date: 20110219
  Serious: Yes (Hospitalization)
  Sender: FDA-Public Use
  Company Number: None

PATIENT
  Age: 81 Year
  Sex: Male
  Weight: 105 kg

DRUGS (1)
  1. DIGOXIN [Suspect]
     Dosage: 1 TAB EVERY DAY PO
     Route: 048
     Dates: start: 20100616, end: 20100622

REACTIONS (4)
  - ARTHRALGIA [None]
  - BRADYCARDIA [None]
  - DEHYDRATION [None]
  - HYPOTHYROIDISM [None]
